FAERS Safety Report 5466777-1 (Version None)
Quarter: 2007Q3

REPORT INFORMATION
  Report Type: 
  Country: None (occurrence: None)
  Receive Date: 20070924
  Receipt Date: 20070924
  Transmission Date: 20080115
  Serious: Yes (Congenital Anomaly)
  Sender: FDA-Public Use
  Company Number: None

PATIENT
  Sex: Male
  Weight: 4.1731 kg

DRUGS (1)
  1. LUPRON [Suspect]
     Indication: ENDOMETRIOSIS
     Dosage: ONE SHOT  ONCE A MONTH  IM
     Route: 030
     Dates: start: 20020316, end: 20020816

REACTIONS (4)
  - DRUG EXPOSURE DURING PREGNANCY [None]
  - HYPERTENSION [None]
  - MONORCHIDISM [None]
  - SOLITARY KIDNEY [None]
